FAERS Safety Report 8659785 (Version 3)
Quarter: 2017Q2

REPORT INFORMATION
  Report Type: Spontaneous
  Country: DE (occurrence: DE)
  Receive Date: 20120711
  Receipt Date: 20170630
  Transmission Date: 20170830
  Serious: Yes (Death)
  Sender: FDA-Public Use
  Company Number: DE-PFIZER INC-2012163965

PATIENT
  Age: 89 Year
  Sex: Male

DRUGS (18)
  1. HALOPERIDOL. [Interacting]
     Active Substance: HALOPERIDOL
     Dosage: 2.5 MG, DAILY FROM DAY 8
  2. MELPERONE [Interacting]
     Active Substance: MELPERONE
     Dosage: 25 MG UP TO SIX TIMES DAILY, AS NEEDED
  3. RISPERIDONE. [Interacting]
     Active Substance: RISPERIDONE
     Dosage: 1.5 DAILY FROM DAY 8
  4. MELPERONE [Interacting]
     Active Substance: MELPERONE
     Dosage: 25 TO 50 MG, 4X/DAY
  5. ISOSORBIDE DINITRATE. [Interacting]
     Active Substance: ISOSORBIDE DINITRATE
     Dosage: 120 MG, DAILY
  6. RISPERIDONE. [Interacting]
     Active Substance: RISPERIDONE
     Dosage: 1 MG (POSSIBLY EARLIER 1.5 MG), DAILY
  7. ACETYLSALICYLIC ACID [Interacting]
     Active Substance: ASPIRIN
     Dosage: 100 MG, DAILY
  8. OXAZEPAM. [Interacting]
     Active Substance: OXAZEPAM
     Indication: CIRCADIAN RHYTHM SLEEP DISORDER
     Dosage: 20 MG
  9. OXAZEPAM. [Interacting]
     Active Substance: OXAZEPAM
     Dosage: 15 MG, DAILY, FROM DAY 2
  10. BISOPROLOL FUMARATE. [Interacting]
     Active Substance: BISOPROLOL FUMARATE
     Dosage: 5 MG, DAILY
  11. HYDROCHLOROTHIAZIDE. [Interacting]
     Active Substance: HYDROCHLOROTHIAZIDE
     Dosage: 25 MG, DAILY
  12. HALOPERIDOL. [Interacting]
     Active Substance: HALOPERIDOL
     Dosage: 3 MG, DAILY FROM DAY 6
  13. ALFUZOSIN [Interacting]
     Active Substance: ALFUZOSIN
     Dosage: 10 MG, DAILY
  14. CAPTOPRIL. [Interacting]
     Active Substance: CAPTOPRIL
     Dosage: 50 MG, DAILY
  15. HALOPERIDOL. [Suspect]
     Active Substance: HALOPERIDOL
     Dosage: 5 MG, DAILY, FROM DAY 1
  16. HALOPERIDOL. [Interacting]
     Active Substance: HALOPERIDOL
     Dosage: 1.5 MG
  17. GALANTAMINE HYDROBROMIDE. [Interacting]
     Active Substance: GALANTAMINE HYDROBROMIDE
     Dosage: 16 MG, DAILY
  18. LORAZEPAM. [Concomitant]
     Active Substance: LORAZEPAM
     Dosage: UP TO 2MG DAILY AS NEEDED

REACTIONS (2)
  - Sudden death [Fatal]
  - Drug interaction [Fatal]
